FAERS Safety Report 7002401-4 (Version None)
Quarter: 2010Q3

REPORT INFORMATION
  Report Type: 
  Country: None (occurrence: None)
  Receive Date: 20100920
  Receipt Date: 20100506
  Transmission Date: 20110219
  Serious: Yes (Other)
  Sender: FDA-Public Use
  Company Number: US-ASTRAZENECA-2010SE20645

PATIENT

DRUGS (2)
  1. SEROQUEL [Suspect]
     Route: 048
  2. LYRICA [Suspect]
     Route: 065

REACTIONS (1)
  - WEIGHT INCREASED [None]
